FAERS Safety Report 8073479-4 (Version None)
Quarter: 2012Q1

REPORT INFORMATION
  Report Type: 
  Country: None (occurrence: None)
  Receive Date: 20120126
  Receipt Date: 20120126
  Transmission Date: 20120608
  Serious: Yes (Hospitalization)
  Sender: FDA-Public Use
  Company Number: None

PATIENT
  Age: 47 Year
  Sex: Male
  Weight: 90.718 kg

DRUGS (2)
  1. NDC 0603-4593-15 [Concomitant]
  2. METHYLPREDNISOLONE [Suspect]
     Indication: BRONCHITIS
     Dosage: 6 DAY PACK
     Route: 048
     Dates: start: 20120118, end: 20120122

REACTIONS (11)
  - BLOOD PRESSURE INCREASED [None]
  - MIDDLE INSOMNIA [None]
  - MOOD SWINGS [None]
  - HEART RATE INCREASED [None]
  - ANXIETY [None]
  - FEELING ABNORMAL [None]
  - HYPERHIDROSIS [None]
  - PALPITATIONS [None]
  - TACHYPHRENIA [None]
  - TINNITUS [None]
  - INSOMNIA [None]
